FAERS Safety Report 19570282 (Version 2)
Quarter: 2021Q4

REPORT INFORMATION
  Report Type: Spontaneous
  Country: JP (occurrence: JP)
  Receive Date: 20210716
  Receipt Date: 20211229
  Transmission Date: 20220303
  Serious: Yes (Death, Other)
  Sender: FDA-Public Use
  Company Number: JP-JAZZ-2021-JP-012533

PATIENT
  Age: 54 Year
  Sex: Male
  Weight: 90.6 kg

DRUGS (3)
  1. DEFITELIO [Suspect]
     Active Substance: DEFIBROTIDE SODIUM
     Indication: Venoocclusive liver disease
     Dosage: 1120 MILLIGRAM, QD
     Route: 042
     Dates: start: 20210622, end: 20210622
  2. DEFITELIO [Suspect]
     Active Substance: DEFIBROTIDE SODIUM
     Dosage: 2240 MILLIGRAM, QD
     Route: 042
     Dates: start: 20210623, end: 20210706
  3. DEFITELIO [Suspect]
     Active Substance: DEFIBROTIDE SODIUM
     Dosage: 1120 MILLIGRAM, QD
     Route: 042
     Dates: start: 20210707, end: 20210707

REACTIONS (1)
  - Venoocclusive liver disease [Fatal]

NARRATIVE: CASE EVENT DATE: 20210622
